FAERS Safety Report 24742542 (Version 1)
Quarter: 2024Q4

REPORT INFORMATION
  Report Type: Spontaneous
  Country: IT (occurrence: IT)
  Receive Date: 20241217
  Receipt Date: 20241217
  Transmission Date: 20250114
  Serious: Yes (Hospitalization)
  Sender: TEVA
  Company Number: None

PATIENT
  Age: 1 Year
  Sex: Female
  Weight: 8 kg

DRUGS (1)
  1. AMOXICILLIN [Suspect]
     Active Substance: AMOXICILLIN
     Indication: Upper respiratory tract infection
     Dosage: TIME INTERVAL: 0.33333333 DAYS: 5 ML X 3 TIMES A DAY FOR 7 DAYS
     Route: 048
     Dates: start: 20240624, end: 20240630

REACTIONS (3)
  - Angioedema [Recovered/Resolved]
  - Rash erythematous [Recovered/Resolved]
  - Urinary retention [Recovered/Resolved]

NARRATIVE: CASE EVENT DATE: 20240701
